FAERS Safety Report 7533425-6 (Version None)
Quarter: 2011Q2

REPORT INFORMATION
  Report Type: 
  Country: None (occurrence: None)
  Receive Date: 20110608
  Receipt Date: 20051031
  Transmission Date: 20111010
  Serious: Yes (Other)
  Sender: FDA-Public Use
  Company Number: PHHO2005CA09218

PATIENT
  Sex: Female

DRUGS (5)
  1. SENOKOT [Concomitant]
  2. SANDOSTATIN LAR [Suspect]
     Dosage: 30 MG, EVERY 4 WEEKS
     Dates: start: 20020920
  3. FERROUS SULFATE TAB [Concomitant]
  4. PEGVISOMANT [Concomitant]
  5. TYLENOL-500 [Concomitant]

REACTIONS (9)
  - BENIGN BREAST NEOPLASM [None]
  - RECTAL HAEMORRHAGE [None]
  - HEADACHE [None]
  - BACK PAIN [None]
  - DIZZINESS [None]
  - ARTHRALGIA [None]
  - SYNCOPE [None]
  - WEIGHT DECREASED [None]
  - CONSTIPATION [None]
